FAERS Safety Report 20874306 (Version 2)
Quarter: 2022Q2

REPORT INFORMATION
  Report Type: Spontaneous
  Country: JP (occurrence: JP)
  Receive Date: 20220525
  Receipt Date: 20220617
  Transmission Date: 20220720
  Serious: Yes (Life-Threatening, Hospitalization)
  Sender: FDA-Public Use
  Company Number: JP-MALLINCKRODT-T202202074

PATIENT
  Age: 0 Year
  Sex: Male
  Weight: 1 kg

DRUGS (10)
  1. NITRIC OXIDE [Suspect]
     Active Substance: NITRIC OXIDE
     Indication: Pulmonary hypertension
     Dosage: 10 PPM INHALATION
     Route: 055
     Dates: start: 20220413, end: 20220413
  2. NITRIC OXIDE [Suspect]
     Active Substance: NITRIC OXIDE
     Indication: Chronic respiratory disease
     Dosage: 15 PPM INHALATION
     Route: 055
     Dates: start: 20220413, end: 20220607
  3. CALCIUM GLUCONATE\DEXTROSE\MAGNESIUM SULFATE\POTASSIUM ACETATE\POTASSI [Concomitant]
     Active Substance: CALCIUM GLUCONATE\DEXTROSE\MAGNESIUM SULFATE\POTASSIUM ACETATE\POTASSIUM PHOSPHATE, DIBASIC\ZINC SUL
     Indication: Nutritional supplementation
     Dosage: UNK
     Route: 041
     Dates: start: 20220418, end: 20220419
  4. PLEAMIN P [Concomitant]
     Indication: Product used for unknown indication
     Dosage: 1-5,TOTAL 2, 36 ?L
     Route: 065
  5. HEPARIN SODIUM [Concomitant]
     Active Substance: HEPARIN SODIUM
     Indication: Product used for unknown indication
     Dosage: UNK
     Route: 065
  6. CYANOCOBALAMIN\PYRIDOXAMINE HYDROCHLORIDE\THIAMINE HYDROCHLORIDE [Concomitant]
     Active Substance: CYANOCOBALAMIN\PYRIDOXAMINE HYDROCHLORIDE\THIAMINE HYDROCHLORIDE
     Indication: Product used for unknown indication
     Dosage: UNK
     Route: 065
  7. VOLVIX [Concomitant]
     Indication: Product used for unknown indication
     Dosage: UNK
     Route: 065
  8. MENATETRENONE [Concomitant]
     Active Substance: MENATETRENONE
     Indication: Product used for unknown indication
     Dosage: 0.2 MILLILITER, QD, RAPID
     Route: 065
     Dates: start: 20220419
  9. VANCOMYCIN [Concomitant]
     Active Substance: VANCOMYCIN
     Indication: Product used for unknown indication
     Dosage: 10 MILLIGRAM, BID
     Route: 041
     Dates: start: 20220419
  10. ESPO [Concomitant]
     Indication: Product used for unknown indication
     Dosage: 750 1 TIME
     Route: 058
     Dates: start: 20220419

REACTIONS (2)
  - Oxygen saturation decreased [Recovered/Resolved]
  - Product administration interrupted [Unknown]

NARRATIVE: CASE EVENT DATE: 20220419
